FAERS Safety Report 5327669-1 (Version None)
Quarter: 2007Q2

REPORT INFORMATION
  Report Type: 
  Country: None (occurrence: None)
  Receive Date: 20070220
  Receipt Date: 20061205
  Transmission Date: 20071010
  Serious: No
  Sender: FDA-Public Use
  Company Number: WAES 0612USA01002

PATIENT
  Age: 54 Year
  Sex: Female

DRUGS (7)
  1. JANUVIA [Suspect]
     Indication: DIABETES MELLITUS NON-INSULIN-DEPENDENT
     Dosage: 100 MG, DAILY, PO
     Route: 048
     Dates: start: 20061114, end: 20060101
  2. BONIVA [Concomitant]
  3. CARAFATE [Concomitant]
  4. GLUCOVANCE [Concomitant]
  5. LANTUS [Concomitant]
  6. ZANTAC [Concomitant]
  7. HYDROCHLOROTHIAZIDE + LISINOPR [Concomitant]

REACTIONS (5)
  - ANAPHYLACTIC REACTION [None]
  - DRY MOUTH [None]
  - LIP SWELLING [None]
  - SPEECH DISORDER [None]
  - TREMOR [None]
